FAERS Safety Report 12495580 (Version 2)
Quarter: 2016Q2

REPORT INFORMATION
  Report Type: Other
  Country: DE (occurrence: DE)
  Receive Date: 20160624
  Receipt Date: 20160624
  Transmission Date: 20160815
  Serious: Yes (Other)
  Sender: FDA-Public Use
  Company Number: DE-CIPLA LTD.-2016DE08108

PATIENT

DRUGS (3)
  1. CITALOPRAM [Suspect]
     Active Substance: CITALOPRAM HYDROBROMIDE
     Indication: SUICIDE ATTEMPT
     Dosage: UNK
     Route: 048
  2. QUETIAPINE. [Suspect]
     Active Substance: QUETIAPINE
     Indication: SUICIDE ATTEMPT
     Dosage: 8 G /, UNK
     Route: 048
  3. ETHANOL [Suspect]
     Active Substance: ALCOHOL
     Dosage: UNK
     Route: 048

REACTIONS (8)
  - Pneumonia [Unknown]
  - Somnolence [Unknown]
  - Coma [Unknown]
  - Heart rate increased [Unknown]
  - Intentional overdose [Unknown]
  - Drug level increased [Unknown]
  - Overdose [Unknown]
  - Suicide attempt [Unknown]
